FAERS Safety Report 13668769 (Version 3)
Quarter: 2017Q4

REPORT INFORMATION
  Report Type: Spontaneous
  Country: CO (occurrence: CO)
  Receive Date: 20170620
  Receipt Date: 20171106
  Transmission Date: 20180320
  Serious: No
  Sender: FDA-Public Use
  Company Number: CO-HIKMA PHARMACEUTICALS CO. LTD-2017CO007656

PATIENT

DRUGS (102)
  1. REMSIMA [Suspect]
     Active Substance: INFLIXIMAB
     Indication: PYODERMA GANGRENOSUM
     Dosage: 350 MG, 8 WEEKS
     Route: 042
     Dates: start: 20160222, end: 20160222
  2. REMSIMA [Suspect]
     Active Substance: INFLIXIMAB
     Dosage: 350 MG, 8 WEEKS
     Route: 065
     Dates: start: 20170603, end: 20170603
  3. DIPHENHYDRAMINE. [Concomitant]
     Active Substance: DIPHENHYDRAMINE
     Indication: PROPHYLAXIS
     Dosage: 50 MG, UNK
     Route: 048
  4. ACETAMINOFEN [Concomitant]
     Active Substance: ACETAMINOPHEN
     Dosage: UNK
     Dates: start: 20170303
  5. METFORMINA CLORHIDRATO GLIBENCLAMIDA [Concomitant]
     Dosage: UNK
     Dates: start: 20161230
  6. WINADEINE [Concomitant]
     Dosage: UNK
     Dates: start: 20170203
  7. ACIDO FOLICO                       /00024201/ [Concomitant]
     Active Substance: FOLIC ACID
     Dosage: UNK
     Dates: start: 20170203
  8. ACIDO FOLICO                       /00024201/ [Concomitant]
     Active Substance: FOLIC ACID
     Dosage: UNK
     Dates: start: 20170405
  9. CALCITRIOL. [Concomitant]
     Active Substance: CALCITRIOL
     Dosage: UNK
     Dates: start: 20170103
  10. HUMIRA [Concomitant]
     Active Substance: ADALIMUMAB
     Dosage: UNK
     Dates: start: 20170215
  11. STELARA [Concomitant]
     Active Substance: USTEKINUMAB
     Dosage: UNK
     Dates: start: 20170123
  12. TRAMADOL. [Concomitant]
     Active Substance: TRAMADOL
     Dosage: UNK
     Dates: start: 20170509
  13. METFORMIN [Concomitant]
     Active Substance: METFORMIN HYDROCHLORIDE
     Dosage: UNK
     Dates: start: 20170331
  14. CITRAGEL [Concomitant]
     Dosage: UNK
     Dates: start: 20170405
  15. OXICODONA [Concomitant]
     Active Substance: OXYCODONE
     Dosage: UNK
     Dates: start: 20170420
  16. LYRICA [Concomitant]
     Active Substance: PREGABALIN
  17. AMOXICILINA                        /00249602/ [Concomitant]
     Active Substance: AMOXICILLIN
     Dosage: UNK
     Dates: start: 20170509
  18. REMSIMA [Suspect]
     Active Substance: INFLIXIMAB
     Dosage: UNK
     Route: 065
     Dates: start: 20161222, end: 20161222
  19. METHYLPREDNISOLONE. [Concomitant]
     Active Substance: METHYLPREDNISOLONE
     Indication: PROPHYLAXIS
     Dosage: 100 MG, UNK
  20. LOSARTAN POTASICO [Concomitant]
     Active Substance: LOSARTAN
     Dosage: UNK
     Dates: start: 20170331
  21. ACETAMINOFEN [Concomitant]
     Active Substance: ACETAMINOPHEN
     Dosage: UNK
     Dates: start: 20170128
  22. ACETAMINOFEN [Concomitant]
     Active Substance: ACETAMINOPHEN
     Dosage: UNK
     Dates: start: 20170306
  23. HUMIRA [Concomitant]
     Active Substance: ADALIMUMAB
     Dosage: UNK
     Dates: start: 20170407
  24. NUEVID [Concomitant]
     Dosage: UNK
     Dates: start: 20170313
  25. TRAMADOL. [Concomitant]
     Active Substance: TRAMADOL
     Dosage: UNK
     Dates: start: 20170512
  26. ESOMEPRAZOL                        /01479301/ [Concomitant]
     Active Substance: ESOMEPRAZOLE
     Dosage: UNK
     Dates: start: 20170301
  27. ESOMEPRAZOL                        /01479301/ [Concomitant]
     Active Substance: ESOMEPRAZOLE
     Dosage: UNK
     Dates: start: 20170404
  28. GALAC [Concomitant]
     Dosage: UNK
     Dates: start: 20170404
  29. CLARITROMICINA [Concomitant]
     Active Substance: CLARITHROMYCIN
     Dosage: UNK
     Dates: start: 20170328
  30. OMEPRAZOL                          /00661201/ [Concomitant]
     Active Substance: OMEPRAZOLE
     Dosage: UNK
     Dates: start: 20170405
  31. ACETAMINOFEN [Concomitant]
     Active Substance: ACETAMINOPHEN
     Dosage: UNK
     Dates: start: 20170331
  32. PRAZIDEX [Concomitant]
     Dosage: UNK
     Dates: start: 20161230
  33. METOTREXATE [Concomitant]
     Active Substance: METHOTREXATE SODIUM
     Dosage: UNK
     Dates: start: 20170304
  34. METOTREXATE [Concomitant]
     Active Substance: METHOTREXATE SODIUM
     Dosage: UNK
     Dates: start: 20170405
  35. ALENDRONATO [Concomitant]
     Active Substance: ALENDRONATE SODIUM
     Dosage: UNK
     Dates: start: 20170203
  36. ALENDRONATO [Concomitant]
     Active Substance: ALENDRONATE SODIUM
     Dosage: UNK
     Dates: start: 20170405
  37. CALCITRIOL. [Concomitant]
     Active Substance: CALCITRIOL
     Dosage: UNK
     Dates: start: 20170203
  38. DORPRETIM [Concomitant]
     Dosage: UNK
     Dates: start: 20170308
  39. OMEPRAZOL                          /00661201/ [Concomitant]
     Active Substance: OMEPRAZOLE
     Dosage: UNK
     Dates: start: 20170331
  40. DORZOLAMIDA/TIMOLOL ACTAVIS [Concomitant]
     Dosage: UNK
     Dates: start: 20170410
  41. ASPROMIO [Concomitant]
     Dosage: UNK
     Dates: start: 20170509
  42. REMSIMA [Suspect]
     Active Substance: INFLIXIMAB
     Dosage: UNK
     Dates: start: 20170105, end: 20170105
  43. LOSARTAN POTASICO [Concomitant]
     Active Substance: LOSARTAN
     Dosage: UNK
     Dates: start: 20161230
  44. LOSARTAN POTASICO [Concomitant]
     Active Substance: LOSARTAN
     Dosage: UNK
     Dates: start: 20170303
  45. ACETAMINOFEN [Concomitant]
     Active Substance: ACETAMINOPHEN
     Dosage: UNK
     Dates: start: 20170520
  46. LEVOTIROXINA (LEVOTHYROXINE SODIUM) [Concomitant]
     Active Substance: LEVOTHYROXINE SODIUM
     Dosage: UNK
     Dates: start: 20170128
  47. PRAZIDEX [Concomitant]
     Dosage: UNK
     Dates: start: 20170203
  48. METFORMINA CLORHIDRATO GLIBENCLAMIDA [Concomitant]
     Dosage: UNK
     Dates: start: 20170512
  49. WINADEINE [Concomitant]
     Dosage: UNK
     Dates: start: 20170103
  50. WINADEINE [Concomitant]
     Dosage: UNK
     Dates: start: 20170322
  51. CALCITRIOL. [Concomitant]
     Active Substance: CALCITRIOL
     Dosage: UNK
     Dates: start: 20170405
  52. TRAMADOL. [Concomitant]
     Active Substance: TRAMADOL
     Dosage: UNK
     Dates: start: 20170128
  53. CITRAGEL [Concomitant]
     Dosage: UNK
     Dates: start: 20170306
  54. EUTIROX [Concomitant]
     Active Substance: LEVOTHYROXINE SODIUM
     Dosage: UNK
     Dates: start: 20170331
  55. PREDNISOLONA                       /00016201/ [Concomitant]
     Dosage: UNK
     Dates: start: 20170404
  56. SIMPONI [Concomitant]
     Active Substance: GOLIMUMAB
     Dosage: UNK
     Dates: start: 20170524
  57. PRAZIDEX [Concomitant]
     Dosage: UNK
     Dates: start: 20170128
  58. METOTREXATE [Concomitant]
     Active Substance: METHOTREXATE SODIUM
     Dosage: UNK
     Dates: start: 20170103
  59. WINADEINE [Concomitant]
     Dosage: UNK
     Dates: start: 20170511
  60. ALENDRONATO [Concomitant]
     Active Substance: ALENDRONATE SODIUM
     Dosage: UNK
     Dates: start: 20170103
  61. ACIDO FOLICO                       /00024201/ [Concomitant]
     Active Substance: FOLIC ACID
     Dosage: UNK
     Dates: start: 20170103
  62. CALCIFORTE VITAMINE D3 [Concomitant]
     Dosage: UNK
     Dates: start: 20170203
  63. NAPROXENO                          /00256201/ [Concomitant]
     Active Substance: NAPROXEN
     Dosage: UNK
     Dates: start: 20170328
  64. DICLOFENACO                        /00372301/ [Concomitant]
     Active Substance: DICLOFENAC
     Dosage: UNK
     Route: 042
     Dates: start: 20170328
  65. KETOTIFENO [Concomitant]
     Dosage: UNK
     Dates: start: 20170509
  66. REMSIMA [Suspect]
     Active Substance: INFLIXIMAB
     Dosage: UNK
     Dates: start: 20170202, end: 20170202
  67. ACIDO FOLICO                       /00024201/ [Concomitant]
     Active Substance: FOLIC ACID
     Dosage: UNK
     Dates: start: 20170210
  68. CALCITRIOL. [Concomitant]
     Active Substance: CALCITRIOL
     Dosage: UNK
     Dates: start: 20170306
  69. HUMIRA [Concomitant]
     Active Substance: ADALIMUMAB
     Dosage: UNK
     Dates: start: 20170107
  70. METFORMIN [Concomitant]
     Active Substance: METFORMIN HYDROCHLORIDE
     Dosage: UNK
     Dates: start: 20170128
  71. ESOMEPRAZOL                        /01479301/ [Concomitant]
     Active Substance: ESOMEPRAZOLE
     Dosage: UNK
     Dates: start: 20170328
  72. PRAZED [Concomitant]
     Dosage: UNK
     Dates: start: 20170303
  73. LOSARTAN POTASICO [Concomitant]
     Active Substance: LOSARTAN
     Dosage: UNK
     Dates: start: 20170128
  74. ACETAMINOFEN [Concomitant]
     Active Substance: ACETAMINOPHEN
     Dosage: UNK
     Dates: start: 20161230
  75. ACETAMINOFEN [Concomitant]
     Active Substance: ACETAMINOPHEN
     Dosage: UNK
     Dates: start: 20170509
  76. LEVOTIROXINA (LEVOTHYROXINE SODIUM) [Concomitant]
     Active Substance: LEVOTHYROXINE SODIUM
     Dosage: UNK
     Dates: start: 20161230
  77. PRAZIDEX [Concomitant]
     Dosage: UNK
     Dates: start: 20170103
  78. METOTREXATE [Concomitant]
     Active Substance: METHOTREXATE SODIUM
     Dosage: UNK
     Dates: start: 20170110
  79. METOTREXATE [Concomitant]
     Active Substance: METHOTREXATE SODIUM
     Dosage: UNK
     Dates: start: 20170210
  80. METOTREXATE [Concomitant]
     Active Substance: METHOTREXATE SODIUM
     Dosage: UNK
     Dates: start: 20170530
  81. ACIDO FOLICO                       /00024201/ [Concomitant]
     Active Substance: FOLIC ACID
     Dosage: UNK
     Dates: start: 20170110
  82. CALCIFORTE VITAMINE D3 [Concomitant]
     Dosage: UNK
     Dates: start: 20170103
  83. NUEVID [Concomitant]
     Dosage: UNK
     Dates: start: 20170113
  84. STELARA [Concomitant]
     Active Substance: USTEKINUMAB
     Dosage: UNK
     Dates: start: 20170421
  85. TRAMADOL. [Concomitant]
     Active Substance: TRAMADOL
     Dosage: UNK
     Dates: start: 20170331
  86. GALAC [Concomitant]
     Dosage: UNK
     Dates: start: 20170301
  87. MIOFLEX                            /00057702/ [Concomitant]
     Active Substance: SUCCINYLCHOLINE CHLORIDE
     Dosage: UNK
     Dates: start: 20170328
  88. RANITIDINE. [Concomitant]
     Active Substance: RANITIDINE
  89. ACETAMINOFEN [Concomitant]
     Active Substance: ACETAMINOPHEN
     Indication: PROPHYLAXIS
     Dosage: 1 G, UNK
     Route: 048
  90. LOSARTAN POTASICO [Concomitant]
     Active Substance: LOSARTAN
     Dosage: UNK
     Dates: start: 20170512
  91. ACETAMINOFEN [Concomitant]
     Active Substance: ACETAMINOPHEN
     Dosage: UNK
     Dates: start: 20170405
  92. ANGIOVAN                           /00741901/ [Concomitant]
     Dosage: UNK
     Dates: start: 20170103
  93. ALENDRONATO [Concomitant]
     Active Substance: ALENDRONATE SODIUM
     Dosage: UNK
     Dates: start: 20170306
  94. ACIDO FOLICO                       /00024201/ [Concomitant]
     Active Substance: FOLIC ACID
     Dosage: UNK
     Dates: start: 20170306
  95. HUMIRA [Concomitant]
     Active Substance: ADALIMUMAB
     Dosage: UNK
     Dates: start: 20170309
  96. HUMIRA [Concomitant]
     Active Substance: ADALIMUMAB
     Dosage: UNK
     Dates: start: 20170503
  97. METFORMIN [Concomitant]
     Active Substance: METFORMIN HYDROCHLORIDE
     Dosage: UNK
     Dates: start: 20170303
  98. ANGIOVAN                           /00741901/ [Concomitant]
     Dosage: UNK
     Dates: start: 20170206
  99. PROLIA [Concomitant]
     Active Substance: DENOSUMAB
     Dosage: UNK
     Dates: start: 20170228
  100. LAGRICEL OFTENO [Concomitant]
     Dosage: UNK
     Dates: start: 20170308
  101. LAGRICEL OFTENO [Concomitant]
     Dosage: UNK
     Dates: start: 20170410
  102. SIMPONI [Concomitant]
     Active Substance: GOLIMUMAB
     Dosage: UNK
     Dates: start: 20170424

REACTIONS (1)
  - Off label use [Unknown]
